FAERS Safety Report 15954829 (Version 3)
Quarter: 2019Q1

REPORT INFORMATION
  Report Type: Report from Study
  Country: None (occurrence: US)
  Receive Date: 20190213
  Receipt Date: 20190218
  Transmission Date: 20190417
  Serious: Yes (Death, Hospitalization, Other)
  Sender: FDA-Public Use
  Company Number: US-ABBVIE-19S-163-2662644-00

PATIENT
  Sex: Female
  Weight: 29.51 kg

DRUGS (5)
  1. PROTONIX [Concomitant]
     Active Substance: PANTOPRAZOLE SODIUM
     Indication: GASTROOESOPHAGEAL REFLUX DISEASE
  2. ASPIRIN. [Concomitant]
     Active Substance: ASPIRIN
     Indication: CARDIOVASCULAR EVENT PROPHYLAXIS
     Dosage: LOW DOSE
  3. PREMARIN [Concomitant]
     Active Substance: ESTROGENS, CONJUGATED
     Indication: HYSTERECTOMY
  4. TOPROL XL [Concomitant]
     Active Substance: METOPROLOL SUCCINATE
     Indication: HYPERTENSION
  5. SYNTHROID [Suspect]
     Active Substance: LEVOTHYROXINE SODIUM
     Indication: AUTOIMMUNE THYROIDITIS
     Dosage: 4-5 TIMES PER WEEK
     Route: 048

REACTIONS (9)
  - Weight decreased [Fatal]
  - Blood thyroid stimulating hormone abnormal [Not Recovered/Not Resolved]
  - Muscle atrophy [Unknown]
  - Hallucination, auditory [Not Recovered/Not Resolved]
  - Blood sodium decreased [Not Recovered/Not Resolved]
  - Disease progression [Unknown]
  - Gastrooesophageal reflux disease [Not Recovered/Not Resolved]
  - Dementia [Fatal]
  - Dysphagia [Fatal]

NARRATIVE: CASE EVENT DATE: 2016
